FAERS Safety Report 7097323-7 (Version None)
Quarter: 2010Q4

REPORT INFORMATION
  Report Type: 
  Country: None (occurrence: None)
  Receive Date: 20101111
  Receipt Date: 20100310
  Transmission Date: 20110411
  Serious: No
  Sender: FDA-Public Use
  Company Number: US-KINGPHARMUSA00001-K201000293

PATIENT
  Sex: Female

DRUGS (1)
  1. LEVOXYL [Suspect]
     Indication: HYPOTHYROIDISM
     Dosage: 75 MCG, QD
     Route: 048

REACTIONS (3)
  - DEPRESSED MOOD [None]
  - FATIGUE [None]
  - OEDEMA PERIPHERAL [None]
